FAERS Safety Report 11318029 (Version 1)
Quarter: 2015Q3

REPORT INFORMATION
  Report Type: Spontaneous
  Country: CA (occurrence: CA)
  Receive Date: 20150728
  Receipt Date: 20150728
  Transmission Date: 20151125
  Serious: Yes (Hospitalization, Other)
  Sender: FDA-Public Use
  Company Number: CA-ABBVIE-15P-028-1431133-00

PATIENT
  Age: 43 Year
  Sex: Female
  Weight: 76 kg

DRUGS (1)
  1. LUPRON DEPOT [Suspect]
     Active Substance: LEUPROLIDE ACETATE
     Indication: ENDOMETRIOSIS
     Route: 058

REACTIONS (8)
  - Palpitations [Not Recovered/Not Resolved]
  - Throat tightness [Not Recovered/Not Resolved]
  - Allergy to chemicals [Not Recovered/Not Resolved]
  - Flushing [Not Recovered/Not Resolved]
  - Food allergy [Not Recovered/Not Resolved]
  - Perfume sensitivity [Not Recovered/Not Resolved]
  - Anxiety [Not Recovered/Not Resolved]
  - Paraesthesia [Not Recovered/Not Resolved]
